FAERS Safety Report 16858849 (Version 1)
Quarter: 2019Q3

REPORT INFORMATION
  Report Type: Spontaneous
  Country: CA (occurrence: CA)
  Receive Date: 20190926
  Receipt Date: 20190926
  Transmission Date: 20191005
  Serious: Yes (Death, Other)
  Sender: FDA-Public Use
  Company Number: CA-ACTELION-A-NJ2018-169469

PATIENT
  Age: 82 Year
  Sex: Female

DRUGS (8)
  1. SPIRONOLACTONE. [Concomitant]
     Active Substance: SPIRONOLACTONE
  2. TRACLEER [Suspect]
     Active Substance: BOSENTAN
     Indication: PULMONARY ARTERIAL HYPERTENSION
     Dosage: 125 MG, BID
     Route: 048
     Dates: start: 20090901
  3. FUROSEMIDE. [Concomitant]
     Active Substance: FUROSEMIDE
  4. PROLIA [Concomitant]
     Active Substance: DENOSUMAB
  5. SENOKOT [Concomitant]
     Active Substance: SENNOSIDES
  6. ADCIRCA [Concomitant]
     Active Substance: TADALAFIL
  7. EPREX [Concomitant]
     Active Substance: ERYTHROPOIETIN
  8. DEXILANT [Concomitant]
     Active Substance: DEXLANSOPRAZOLE

REACTIONS (9)
  - Faeces discoloured [Not Recovered/Not Resolved]
  - Sinus congestion [Not Recovered/Not Resolved]
  - Fatigue [Not Recovered/Not Resolved]
  - Transfusion [Recovering/Resolving]
  - Haemoglobin decreased [Recovering/Resolving]
  - Mineral supplementation [Recovering/Resolving]
  - Fall [Not Recovered/Not Resolved]
  - Death [Fatal]
  - Dyspnoea [Not Recovered/Not Resolved]

NARRATIVE: CASE EVENT DATE: 201804
